FAERS Safety Report 9203966 (Version 1)
Quarter: 2013Q2

REPORT INFORMATION
  Report Type: Report from Study
  Country: US (occurrence: US)
  Receive Date: 20130402
  Receipt Date: 20130402
  Transmission Date: 20140414
  Serious: No
  Sender: FDA-Public Use
  Company Number: US-VERTEX PHARMACEUTICALS INC.-2013-004293

PATIENT
  Age: 60 Year
  Sex: Male
  Weight: 88 kg

DRUGS (8)
  1. VX-950 (TELAPREVIR) [Suspect]
     Indication: HEPATITIS C
     Dosage: 750 MG, TID
  2. PEGASYS [Suspect]
     Indication: HEPATITIS C
     Route: 058
  3. RIBAVIRIN [Suspect]
     Indication: HEPATITIS C
     Route: 048
  4. LEVEMIR [Concomitant]
     Route: 058
  5. AMLODIPINE [Concomitant]
     Route: 048
  6. VESICARE [Concomitant]
     Route: 048
  7. METOPROLOL [Concomitant]
     Route: 048
  8. LOSARTAN [Concomitant]
     Route: 048

REACTIONS (6)
  - Influenza like illness [Recovered/Resolved]
  - Dry mouth [Unknown]
  - Anal pruritus [Recovered/Resolved]
  - Anorectal discomfort [Recovered/Resolved]
  - Rectal haemorrhage [Recovered/Resolved]
  - Dysgeusia [Unknown]
